FAERS Safety Report 7462775-7 (Version None)
Quarter: 2011Q2

REPORT INFORMATION
  Report Type: 
  Country: None (occurrence: None)
  Receive Date: 20110506
  Receipt Date: 20110429
  Transmission Date: 20111010
  Serious: Yes (Hospitalization, Other)
  Sender: FDA-Public Use
  Company Number: US-AMGEN-USASP2011022444

PATIENT
  Age: 72 Year
  Sex: Female

DRUGS (1)
  1. ENBREL [Suspect]
     Indication: RHEUMATOID ARTHRITIS
     Dosage: 50 MG, QWK

REACTIONS (10)
  - ANAEMIA [None]
  - OPTIC NERVE DISORDER [None]
  - CHILLS [None]
  - PAIN IN EXTREMITY [None]
  - SYNCOPE [None]
  - HYPOAESTHESIA [None]
  - ARTHRALGIA [None]
  - INCREASED TENDENCY TO BRUISE [None]
  - OROPHARYNGEAL PAIN [None]
  - ASTHENIA [None]
